FAERS Safety Report 25928995 (Version 1)
Quarter: 2025Q4

REPORT INFORMATION
  Report Type: Spontaneous
  Country: US (occurrence: US)
  Receive Date: 20251016
  Receipt Date: 20251016
  Transmission Date: 20260117
  Serious: Yes (Other)
  Sender: COOPERSURGICAL
  Company Number: US-COOPERSURGICAL, INC.-2025CPS007280

PATIENT
  Age: 20 Year
  Sex: Female
  Weight: 81.633 kg

DRUGS (1)
  1. PARAGARD T 380A [Suspect]
     Active Substance: COPPER
     Indication: Contraception
     Dosage: UNK
     Route: 015
     Dates: start: 20100512, end: 20230614

REACTIONS (22)
  - Ovarian cyst [Recovered/Resolved]
  - Uterine leiomyoma [Recovered/Resolved]
  - Surgery [Recovered/Resolved]
  - Reproductive complication associated with device [Unknown]
  - Cervical dysplasia [Unknown]
  - Complication of device removal [Recovered/Resolved]
  - Uterine perforation [Unknown]
  - Complication associated with device [Recovered/Resolved]
  - Anxiety [Recovered/Resolved]
  - Emotional distress [Recovered/Resolved]
  - Loss of libido [Unknown]
  - Infection [Unknown]
  - Unevaluable event [Unknown]
  - Device dislocation [Recovered/Resolved]
  - Intermenstrual bleeding [Unknown]
  - Abnormal uterine bleeding [Recovered/Resolved]
  - Abdominal pain [Unknown]
  - Pelvic pain [Unknown]
  - Menstruation irregular [Not Recovered/Not Resolved]
  - Device use issue [Recovered/Resolved]
  - Off label use [Unknown]
  - Vaginal infection [Unknown]

NARRATIVE: CASE EVENT DATE: 20110729
